FAERS Safety Report 21489357 (Version 3)
Quarter: 2022Q4

REPORT INFORMATION
  Report Type: Report from Study
  Country: BE (occurrence: BE)
  Receive Date: 20221021
  Receipt Date: 20221204
  Transmission Date: 20230112
  Serious: Yes (Hospitalization, Other)
  Sender: FDA-Public Use
  Company Number: BE-CELLTRION INC.-2021BE019346

PATIENT

DRUGS (30)
  1. RITUXIMAB [Suspect]
     Active Substance: RITUXIMAB
     Indication: Follicular lymphoma
     Dosage: 375 MG/M2 (550.11 MG)
     Route: 042
     Dates: start: 20211022
  2. RITUXIMAB [Suspect]
     Active Substance: RITUXIMAB
     Indication: Splenic marginal zone lymphoma stage IV
     Dosage: 375 MG/M2
     Route: 041
     Dates: start: 20211022
  3. RITUXIMAB [Suspect]
     Active Substance: RITUXIMAB
     Dosage: LAST DOSES PRIOR TO THE SAE OF FEVER (FIRST OCCURRENCE) AND GASTROENTERITIS
     Route: 042
     Dates: start: 20211105
  4. RITUXIMAB [Suspect]
     Active Substance: RITUXIMAB
     Dosage: LAST DOSES PRIOR TO THE SAE OF GASTROENTERITIS
     Route: 042
     Dates: start: 20211105
  5. RITUXIMAB [Suspect]
     Active Substance: RITUXIMAB
     Dosage: LAST DOSES PRIOR TO THE SAE OF FEVER (SECOND OCCURRENCE)
     Route: 042
     Dates: start: 20211118
  6. RITUXIMAB [Suspect]
     Active Substance: RITUXIMAB
     Dosage: LAST DOSES PRIOR TO THE SAE OF COUGHING
     Route: 042
     Dates: start: 20211118
  7. RITUXIMAB [Suspect]
     Active Substance: RITUXIMAB
     Dosage: 375 MG/M2
     Route: 042
     Dates: end: 20211118
  8. RITUXIMAB [Suspect]
     Active Substance: RITUXIMAB
     Dosage: (DAYS 1, 8, 15 AND 22 IN CYCLE 1 AND DAY 1 OF EVERY 28-DAY CYCLE FROM CYCLE 2 TO 5)
     Route: 042
     Dates: start: 20211022, end: 20211105
  9. RITUXIMAB [Suspect]
     Active Substance: RITUXIMAB
     Dosage: 375 MG/M2 (550.11MG) (DAYS 1, 8, 15 AND 22 IN CYCLE 1 THEN DAY 1 OF EVERY 28-DAY CYCLE FROM CYCLE 2
     Route: 042
     Dates: start: 20211022
  10. LENALIDOMIDE [Suspect]
     Active Substance: LENALIDOMIDE
     Indication: Follicular lymphoma
     Dosage: 20 MILLIGRAM (PHARMACEUTICAL DOSE FORM: 5)
     Route: 048
     Dates: start: 20211022
  11. LENALIDOMIDE [Suspect]
     Active Substance: LENALIDOMIDE
     Indication: Splenic marginal zone lymphoma stage IV
     Dosage: LAST DOSES PRIOR TO THE SAE OF FEVER (FIRST OCCURRENCE)
     Route: 048
     Dates: start: 20211105
  12. LENALIDOMIDE [Suspect]
     Active Substance: LENALIDOMIDE
     Dosage: LAST DOSES PRIOR TO THE SAE OF COUGHING
     Route: 048
     Dates: start: 20211125
  13. LENALIDOMIDE [Suspect]
     Active Substance: LENALIDOMIDE
     Dosage: 20 MG
     Route: 048
     Dates: end: 20211110
  14. LENALIDOMIDE [Suspect]
     Active Substance: LENALIDOMIDE
     Dosage: 20 MG, 1.3 DAY (DAYS 1 TO 21 OF EVERY 28-DAY CYCLE FOR 12 CYCLES
     Route: 048
     Dates: start: 20211022, end: 20211105
  15. LENALIDOMIDE [Suspect]
     Active Substance: LENALIDOMIDE
     Dosage: 20 MG
     Route: 048
     Dates: end: 20211111
  16. LENALIDOMIDE [Suspect]
     Active Substance: LENALIDOMIDE
     Dosage: 20 MG
     Route: 048
     Dates: end: 20211125
  17. LENALIDOMIDE [Suspect]
     Active Substance: LENALIDOMIDE
     Dosage: 20 MG, QD (DAYS 1-21 OF EACH 28-DAY CYCLE)
     Route: 048
     Dates: start: 20211022
  18. LENALIDOMIDE [Suspect]
     Active Substance: LENALIDOMIDE
     Indication: Follicular lymphoma
     Dosage: LAST DOSE PRIOR TO THE SAE OF GASTROENTERITIS
     Dates: start: 20211110
  19. LENALIDOMIDE [Suspect]
     Active Substance: LENALIDOMIDE
     Indication: Splenic marginal zone lymphoma stage IV
     Dosage: LAST DOSE PRIOR TO THE SAE OF FEVER (SECOND OCCURRENCE)
     Route: 048
     Dates: start: 20211111
  20. TAFASITAMAB [Suspect]
     Active Substance: TAFASITAMAB
     Indication: Follicular lymphoma
     Dosage: 12 MG/KG (600 MG) (ON DAYS 1, 8, 15 AND 22 OF CYCLES 1 TO 3 AND ON DAYS 1 AND 15 OF CYCLES 4 TO 12)
     Route: 042
     Dates: start: 20211022
  21. TAFASITAMAB [Suspect]
     Active Substance: TAFASITAMAB
     Indication: Splenic marginal zone lymphoma stage IV
     Dosage: LAST DOSES PRIOR TO THE SAE OF FEVER (FIRST OCCURRENCE)
     Route: 042
     Dates: start: 20211105
  22. TAFASITAMAB [Suspect]
     Active Substance: TAFASITAMAB
     Dosage: LAST DOSES PRIOR TO THE SAE GASTROENTERITIS
     Route: 042
     Dates: start: 20211105
  23. TAFASITAMAB [Suspect]
     Active Substance: TAFASITAMAB
     Dosage: LAST DOSES PRIOR TO THE SAE OF FEVER (SECOND OCCURRENCE)
     Route: 042
     Dates: start: 20211118
  24. TAFASITAMAB [Suspect]
     Active Substance: TAFASITAMAB
     Dosage: LAST DOSES PRIOR TO THE SAE OF COUGHING
     Route: 042
     Dates: start: 20211125
  25. TAFASITAMAB [Suspect]
     Active Substance: TAFASITAMAB
     Dosage: BLINDED, INFORMATION WITHHELD
     Dates: start: 20211022
  26. TAFASITAMAB-CXIX [Suspect]
     Active Substance: TAFASITAMAB-CXIX
     Indication: Follicular lymphoma
     Dosage: 600 MG (PHARMACEUTICAL DOSE FORM: 124)
     Route: 041
     Dates: start: 20211022
  27. TAFASITAMAB-CXIX [Suspect]
     Active Substance: TAFASITAMAB-CXIX
     Dosage: DAYS 1, 8, 15 AND 22 OF CYCLES 1 TO 3 AND DAYS 1 AND 15 OF CYCLES 4 TO 12
     Route: 042
     Dates: start: 20211022, end: 20211105
  28. TAFASITAMAB-CXIX [Suspect]
     Active Substance: TAFASITAMAB-CXIX
     Dosage: 600 MG
     Route: 042
     Dates: end: 20211118
  29. TAFASITAMAB-CXIX [Suspect]
     Active Substance: TAFASITAMAB-CXIX
     Dosage: 600 MG
     Route: 042
     Dates: end: 20211125
  30. TAFASITAMAB-CXIX [Suspect]
     Active Substance: TAFASITAMAB-CXIX
     Indication: Follicular lymphoma
     Dosage: 600 MG
     Route: 042
     Dates: start: 20211125

REACTIONS (9)
  - Pleural effusion [Recovered/Resolved]
  - Pyrexia [Not Recovered/Not Resolved]
  - Pyrexia [Recovered/Resolved]
  - Gastroenteritis [Recovered/Resolved]
  - Cough [Recovered/Resolved]
  - Blastocystis infection [Recovered/Resolved]
  - Pneumonia [Recovered/Resolved]
  - Condition aggravated [Recovered/Resolved]
  - Chills [Unknown]

NARRATIVE: CASE EVENT DATE: 20211106
